FAERS Safety Report 5166089-X (Version None)
Quarter: 2006Q4

REPORT INFORMATION
  Report Type: 
  Country: None (occurrence: None)
  Receive Date: 20061206
  Receipt Date: 20061128
  Transmission Date: 20070319
  Serious: Yes (Other)
  Sender: FDA-Public Use
  Company Number: GB-JNJFOC-20061106150

PATIENT
  Age: 73 Year
  Sex: Male

DRUGS (7)
  1. INFLIXIMAB [Suspect]
     Dosage: RESTARTED AND DOSE NOT SPECIFIED
  2. INFLIXIMAB [Suspect]
  3. INFLIXIMAB [Suspect]
     Indication: RHEUMATOID ARTHRITIS
  4. METHOTREXATE [Concomitant]
     Indication: RHEUMATOID ARTHRITIS
     Dates: start: 19980101
  5. NON-STEROIDAL ANTI-INFLAMMATORY DRUGS [Concomitant]
     Indication: RHEUMATOID ARTHRITIS
  6. SULFASALAZINE [Concomitant]
     Indication: RHEUMATOID ARTHRITIS
  7. STEROIDS [Concomitant]
     Indication: RHEUMATOID ARTHRITIS

REACTIONS (3)
  - AMYOTROPHIC LATERAL SCLEROSIS [None]
  - BENIGN PROSTATIC HYPERPLASIA [None]
  - PERONEAL NERVE PALSY [None]
